FAERS Safety Report 9291747 (Version 2)
Quarter: 2013Q2

REPORT INFORMATION
  Report Type: Spontaneous
  Country: FR (occurrence: FR)
  Receive Date: 20130516
  Receipt Date: 20130520
  Transmission Date: 20140414
  Serious: Yes (Hospitalization)
  Sender: FDA-Public Use
  Company Number: FR-RANBAXY-2013RR-68256

PATIENT
  Sex: Female
  Weight: 1.6 kg

DRUGS (25)
  1. AMOXICILLIN [Suspect]
     Indication: MATERNAL EXPOSURE TIMING UNSPECIFIED
     Dosage: UNK
     Route: 064
     Dates: start: 20120304, end: 20120316
  2. ZOPHREN [Suspect]
     Indication: MATERNAL EXPOSURE TIMING UNSPECIFIED
     Dosage: 4 MG, TID
     Route: 064
     Dates: start: 20120321, end: 20120324
  3. MIDAZOLAM [Suspect]
     Indication: MATERNAL EXPOSURE TIMING UNSPECIFIED
     Dosage: UNK
     Route: 064
     Dates: start: 20120304, end: 20120323
  4. HYPNOVEL [Suspect]
     Indication: MATERNAL EXPOSURE TIMING UNSPECIFIED
     Dosage: UNK
     Route: 064
     Dates: start: 20120317
  5. SUFENTANIL [Suspect]
     Indication: MATERNAL EXPOSURE TIMING UNSPECIFIED
     Dosage: UNK
     Route: 064
     Dates: start: 20120316, end: 20120323
  6. SUFENTA [Suspect]
     Indication: MATERNAL EXPOSURE BEFORE PREGNANCY
     Dosage: UNK
     Route: 064
     Dates: start: 20120317
  7. ATRACURIUM BESYLATE [Suspect]
     Indication: MATERNAL EXPOSURE BEFORE PREGNANCY
     Dosage: UNK
     Route: 064
     Dates: start: 20120304, end: 20120304
  8. TAZOCILLINE [Suspect]
     Indication: MATERNAL EXPOSURE BEFORE PREGNANCY
     Dosage: UNK
     Route: 064
     Dates: start: 20120316, end: 20120320
  9. CELESTENE [Suspect]
     Indication: MATERNAL EXPOSURE TIMING UNSPECIFIED
     Dosage: UNK
     Route: 064
     Dates: start: 20120316, end: 20120317
  10. CELESTENE [Suspect]
     Dosage: UNK
     Route: 064
     Dates: start: 20120424, end: 20120425
  11. KETAMINE [Suspect]
     Indication: MATERNAL EXPOSURE TIMING UNSPECIFIED
     Dosage: UNK
     Route: 064
     Dates: start: 20120317
  12. PERFALGAN [Suspect]
     Indication: MATERNAL EXPOSURE TIMING UNSPECIFIED
     Dosage: 1G QID, IF TEMPERATURE } 38 DEGREES CELSIUS
     Route: 064
     Dates: start: 20120324, end: 20120325
  13. PERFALGAN [Suspect]
     Dosage: 1 G, QID (IF BODY TEMPERATURE WAS UPPER 38 DEGREES CELSIUS
     Route: 064
     Dates: start: 20120326
  14. TRACTOCILE [Suspect]
     Indication: MATERNAL EXPOSURE TIMING UNSPECIFIED
     Dosage: 1 AMPOULE 45 SPEED 8
     Route: 064
     Dates: start: 20120324, end: 20120326
  15. TRACTOCILE [Suspect]
     Dosage: ELECTRICAL SYRINGE PUMP, 1 AMPOULE, 45 SPEED 8
     Route: 064
     Dates: start: 20120326
  16. INEXIUM [Suspect]
     Indication: MATERNAL EXPOSURE TIMING UNSPECIFIED
     Dosage: 40 MG, QD
     Route: 064
     Dates: start: 20120319, end: 20120325
  17. LOVENOX [Suspect]
     Indication: MATERNAL EXPOSURE TIMING UNSPECIFIED
     Dosage: 40 UNITS, QD
     Route: 064
     Dates: start: 20120304, end: 20120426
  18. OLICLINOMEL [Suspect]
     Indication: MATERNAL EXPOSURE TIMING UNSPECIFIED
     Dosage: 1500 ML, DAILY
     Route: 064
     Dates: start: 20120326
  19. KABIVEN [Suspect]
     Indication: MATERNAL EXPOSURE TIMING UNSPECIFIED
     Dosage: UNK
     Route: 064
     Dates: start: 20120304, end: 20120316
  20. PROPOFOL [Suspect]
     Indication: MATERNAL EXPOSURE TIMING UNSPECIFIED
     Dosage: UNK
     Route: 064
     Dates: start: 20120310, end: 20120316
  21. CEFTRIAXONE [Suspect]
     Indication: MATERNAL EXPOSURE TIMING UNSPECIFIED
     Dosage: UNK
     Route: 064
     Dates: start: 20120304, end: 20120311
  22. FUMAFER [Suspect]
     Indication: MATERNAL EXPOSURE TIMING UNSPECIFIED
     Dosage: UNK
     Route: 064
     Dates: start: 20120304, end: 20120316
  23. TAMIFLU [Suspect]
     Indication: MATERNAL EXPOSURE TIMING UNSPECIFIED
     Dosage: UNK
     Route: 064
     Dates: start: 20120310, end: 20120316
  24. RULID [Suspect]
     Indication: MATERNAL EXPOSURE TIMING UNSPECIFIED
     Dosage: UNK
     Route: 064
     Dates: start: 20120310, end: 20120316
  25. EMLA [Concomitant]
     Indication: MATERNAL EXPOSURE TIMING UNSPECIFIED
     Dosage: UNK
     Route: 064
     Dates: start: 20120326

REACTIONS (5)
  - Foetal growth restriction [Recovering/Resolving]
  - Cerebral haemorrhage [Recovered/Resolved]
  - Left ventricular hypertrophy [Unknown]
  - Foetal exposure during pregnancy [Recovered/Resolved]
  - Premature baby [Unknown]
